FAERS Safety Report 4275198-9 (Version None)
Quarter: 2004Q1

REPORT INFORMATION
  Report Type: 
  Country: None (occurrence: None)
  Receive Date: 20040116
  Receipt Date: 20040102
  Transmission Date: 20041129
  Serious: Yes (Life-Threatening, Hospitalization)
  Sender: FDA-Public Use
  Company Number: 2003GB02557

PATIENT
  Age: 72 Year
  Sex: Male
  Weight: 94.5 kg

DRUGS (9)
  1. IRESSA [Suspect]
     Indication: NON-SMALL CELL LUNG CANCER
     Dosage: 250 MG QD PO
     Dates: start: 20030414, end: 20031112
  2. CLARITHROMYCIN [Suspect]
     Indication: LOWER RESPIRATORY TRACT INFECTION
     Dosage: 500 MG BID
     Dates: start: 20030626, end: 20030627
  3. ERYTHROMYCIN [Suspect]
     Indication: OSTEOMYELITIS
     Dosage: 50 MG PO
     Dates: end: 20030701
  4. ERYTHROMYCIN [Suspect]
     Indication: PROPHYLAXIS
     Dosage: 50 MG PO
     Dates: end: 20030701
  5. ATENOLOL [Concomitant]
  6. COZAAR [Concomitant]
  7. ATORVASTATIN [Concomitant]
  8. ATENOLOL [Concomitant]
  9. ASPIRIN [Concomitant]

REACTIONS (6)
  - ATRIAL FLUTTER [None]
  - BLOOD PRESSURE DECREASED [None]
  - DISEASE PROGRESSION [None]
  - ELECTROCARDIOGRAM QT PROLONGED [None]
  - LOWER RESPIRATORY TRACT INFECTION [None]
  - VENTRICULAR TACHYCARDIA [None]
